FAERS Safety Report 16035665 (Version 1)
Quarter: 2019Q1

REPORT INFORMATION
  Report Type: Spontaneous
  Country: KR (occurrence: KR)
  Receive Date: 20190305
  Receipt Date: 20190305
  Transmission Date: 20190418
  Serious: Yes (Hospitalization, Other)
  Sender: FDA-Public Use
  Company Number: KR-009507513-1902KOR004339

PATIENT
  Sex: Male

DRUGS (11)
  1. KEYTRUDA [Suspect]
     Active Substance: PEMBROLIZUMAB
     Dosage: 1 QUANTITY IN ONE DAY
     Dates: start: 20190204
  2. TRAJENTA [Concomitant]
     Active Substance: LINAGLIPTIN
     Dosage: QUANTITY: 1 IN ONE DAY
     Route: 048
     Dates: start: 20190111, end: 20190111
  3. FRAGMIN [Concomitant]
     Active Substance: DALTEPARIN SODIUM
     Dosage: 0.2 ML (QUANTITY: 1) IN ONE DAY
     Dates: start: 20190111, end: 20190111
  4. KEYTRUDA [Suspect]
     Active Substance: PEMBROLIZUMAB
     Indication: LIP AND/OR ORAL CAVITY CANCER RECURRENT
     Dosage: 1 QUANTITY IN ONE DAY
     Dates: start: 20190111, end: 20190111
  5. TAZOPERAN [Concomitant]
     Dosage: 18 GRAM (QUANTITY: 4) IN ONE DAY
     Dates: start: 20190111, end: 20190111
  6. SODIUM CHLORIDE. [Concomitant]
     Active Substance: SODIUM CHLORIDE
  7. PLAVIX [Concomitant]
     Active Substance: CLOPIDOGREL BISULFATE
     Dosage: 75 MG (QUANTITY: 1) IN ONE DAY
     Route: 048
     Dates: start: 20190111, end: 20190111
  8. LIPITOR [Concomitant]
     Active Substance: ATORVASTATIN CALCIUM
     Dosage: 20 MG (QUANTITY: 1) IN ONE DAY
     Route: 048
     Dates: start: 20190111, end: 20190111
  9. ZIPAN (PROMETHAZINE HYDROCHLORIDE) [Concomitant]
     Dosage: 100 MG (QUANTITY: 1) IN ONE DAY
     Dates: start: 20190111, end: 20190111
  10. FRAGMIN [Concomitant]
     Active Substance: DALTEPARIN SODIUM
     Dosage: QUANTITY: 1 IN ONE DAY; STRENGTH REPORTED AS 25000 INTERNATIONAL UNIT/ML
     Dates: start: 20190111, end: 20190111
  11. PACETA [Concomitant]
     Dosage: QUANTITY: 1 IN ONE DAY

REACTIONS (3)
  - Adverse event [Unknown]
  - Oxygen therapy [Unknown]
  - Kinesitherapy [Unknown]

NARRATIVE: CASE EVENT DATE: 201901
